FAERS Safety Report 8292428-7 (Version None)
Quarter: 2012Q2

REPORT INFORMATION
  Report Type: 
  Country: None (occurrence: None)
  Receive Date: 20120417
  Receipt Date: 20120403
  Transmission Date: 20120825
  Serious: Yes (Hospitalization)
  Sender: FDA-Public Use
  Company Number: GB-CELGENEUS-167-C5013-12040400

PATIENT
  Sex: Female
  Weight: 86.4 kg

DRUGS (5)
  1. ALLOPURINOL [Concomitant]
     Indication: PROPHYLAXIS
     Dosage: 300 MILLIGRAM
     Route: 048
     Dates: start: 20120327
  2. COTRIM [Concomitant]
     Indication: PROPHYLAXIS
     Route: 048
     Dates: start: 20120328
  3. LENALIDOMIDE [Suspect]
     Indication: DIFFUSE LARGE B-CELL LYMPHOMA
     Dosage: 25 MILLIGRAM
     Route: 048
     Dates: start: 20120327, end: 20120402
  4. LACTULOSE [Concomitant]
     Indication: CONSTIPATION
     Dosage: 20-30MLS
     Route: 048
     Dates: start: 20120328
  5. CODEINE PHOSPHATE [Concomitant]
     Indication: PAIN
     Dosage: 30-60MG
     Route: 048
     Dates: start: 20120321

REACTIONS (4)
  - URINARY TRACT INFECTION [None]
  - CHILLS [None]
  - NEUTROPHIL COUNT DECREASED [None]
  - DIARRHOEA [None]
